FAERS Safety Report 9397829 (Version 1)
Quarter: 2013Q3

REPORT INFORMATION
  Report Type: Spontaneous
  Country: CH (occurrence: CH)
  Receive Date: 20130712
  Receipt Date: 20130712
  Transmission Date: 20140515
  Serious: Yes (Hospitalization)
  Sender: FDA-Public Use
  Company Number: CH-ROCHE-1247223

PATIENT
  Age: 68 Year
  Sex: Male

DRUGS (4)
  1. COPEGUS [Suspect]
     Indication: CHRONIC HEPATITIS C
     Route: 048
     Dates: start: 20130315, end: 20130610
  2. REBETOL [Concomitant]
     Route: 065
     Dates: start: 20130610, end: 20130622
  3. PEGASYS [Concomitant]
     Indication: CHRONIC HEPATITIS C
     Route: 058
     Dates: start: 20130315
  4. INCIVO [Concomitant]
     Indication: CHRONIC HEPATITIS C
     Route: 048
     Dates: start: 20130315

REACTIONS (6)
  - Pancytopenia [Recovering/Resolving]
  - Intravascular haemolysis [Recovering/Resolving]
  - Asthenia [Recovering/Resolving]
  - Pallor [Recovering/Resolving]
  - Malaise [Recovering/Resolving]
  - Pyrexia [Recovering/Resolving]
